FAERS Safety Report 6086406-6 (Version None)
Quarter: 2009Q1

REPORT INFORMATION
  Report Type: 
  Country: None (occurrence: None)
  Receive Date: 20090223
  Receipt Date: 20090215
  Transmission Date: 20090719
  Serious: Yes (Death, Hospitalization)
  Sender: FDA-Public Use
  Company Number: JP-SP-2005-02355

PATIENT
  Age: 80 Year
  Sex: Male

DRUGS (2)
  1. IMMUCYST [Suspect]
     Indication: BLADDER CANCER
     Route: 043
     Dates: start: 20050921, end: 20051019
  2. IMMUCYST [Suspect]
     Route: 043
     Dates: start: 20050921, end: 20051019

REACTIONS (7)
  - ARTHRITIS [None]
  - COUGH [None]
  - DYSPNOEA [None]
  - HYPOXIA [None]
  - INCORRECT DOSE ADMINISTERED [None]
  - INTERSTITIAL LUNG DISEASE [None]
  - RESPIRATORY FAILURE [None]
